FAERS Safety Report 11882208 (Version 1)
Quarter: 2015Q4

REPORT INFORMATION
  Report Type: Spontaneous
  Country: CH (occurrence: CH)
  Receive Date: 20151231
  Receipt Date: 20151231
  Transmission Date: 20160305
  Serious: Yes (Other)
  Sender: FDA-Public Use
  Company Number: CH-GUERBET LLC-1046027

PATIENT
  Sex: Male
  Weight: 2.16 kg

DRUGS (1)
  1. HEXABRIX [Suspect]
     Active Substance: IOXAGLATE MEGLUMINE\IOXAGLATE SODIUM
     Indication: FOETAL EXPOSURE TIMING UNSPECIFIED

REACTIONS (3)
  - Premature baby [Unknown]
  - Sepsis neonatal [Unknown]
  - Immature respiratory system [Unknown]

NARRATIVE: CASE EVENT DATE: 20150915
